FAERS Safety Report 7889423-6 (Version None)
Quarter: 2011Q4

REPORT INFORMATION
  Report Type: 
  Country: None (occurrence: None)
  Receive Date: 20111103
  Receipt Date: 20111031
  Transmission Date: 20120403
  Serious: Yes (Other)
  Sender: FDA-Public Use
  Company Number: JP-PFIZER INC-2011257967

PATIENT
  Age: 62 Year
  Sex: Male

DRUGS (12)
  1. VARENICLINE TARTRATE [Suspect]
     Indication: SMOKING CESSATION THERAPY
     Dosage: 0.5 MG, 1X/DAY
     Route: 048
     Dates: start: 20110921, end: 20110923
  2. RINGEREAZE [Concomitant]
     Indication: BACK PAIN
  3. CONIEL [Concomitant]
     Indication: HYPERTENSION
     Dosage: 8 MG, DAILY
     Route: 048
  4. VARENICLINE TARTRATE [Suspect]
     Dosage: 1 MG, 2X/DAY
     Route: 048
     Dates: start: 20111005
  5. VARENICLINE TARTRATE [Suspect]
     Dosage: 0.5 MG, 2X/DAY
     Route: 048
     Dates: start: 20110924, end: 20111004
  6. RINGEREAZE [Concomitant]
     Indication: MIGRAINE
     Dosage: 180 MG,DAILY
     Route: 048
  7. TIZANIDINE HYDROCHLORIDE [Concomitant]
     Indication: MIGRAINE
     Dosage: 3 MG, AS NEEDED
     Route: 048
     Dates: start: 20110421
  8. BEZAFIBRAT - SLOW RELEASE ^ALIUD PHARMA^ [Concomitant]
     Indication: HYPERLIPIDAEMIA
     Dosage: 200 MG, DAILY
     Route: 048
  9. AMOBAN [Concomitant]
     Indication: INITIAL INSOMNIA
     Dosage: 10 MG, DAILY
     Route: 048
     Dates: start: 20100802
  10. AMOBAN [Concomitant]
     Indication: INSOMNIA
  11. DEPAS [Concomitant]
     Indication: INITIAL INSOMNIA
     Dosage: 3MG/ DAILY
     Route: 048
     Dates: end: 20100802
  12. HACHIMIJIO-GAN [Concomitant]
     Indication: POLLAKIURIA
     Dosage: UNK
     Route: 048

REACTIONS (4)
  - ALTERED STATE OF CONSCIOUSNESS [None]
  - SOMNOLENCE [None]
  - IRRITABILITY [None]
  - ROAD TRAFFIC ACCIDENT [None]
